FAERS Safety Report 18458631 (Version 1)
Quarter: 2020Q4

REPORT INFORMATION
  Report Type: Spontaneous
  Country: US (occurrence: US)
  Receive Date: 20201103
  Receipt Date: 20201103
  Transmission Date: 20210114
  Serious: No
  Sender: FDA-Public Use
  Company Number: NVSC2020US287994

PATIENT
  Sex: Female

DRUGS (1)
  1. COSENTYX [Suspect]
     Active Substance: SECUKINUMAB
     Indication: PRODUCT USED FOR UNKNOWN INDICATION
     Dosage: 300 MG, QW (2 PENS LOADING DOSE)
     Route: 065

REACTIONS (5)
  - Injection site extravasation [Unknown]
  - Needle issue [Unknown]
  - Product dose omission issue [Unknown]
  - Underdose [Unknown]
  - Device malfunction [Unknown]
